FAERS Safety Report 10619233 (Version 4)
Quarter: 2015Q1

REPORT INFORMATION
  Report Type: Report from Study
  Country: US (occurrence: US)
  Receive Date: 20141202
  Receipt Date: 20150128
  Transmission Date: 20150720
  Serious: Yes (Hospitalization, Other)
  Sender: FDA-Public Use
  Company Number: US-MYLANLABS-2014SP002530

PATIENT

DRUGS (12)
  1. COUMADIN [Concomitant]
     Active Substance: WARFARIN SODIUM
     Dosage: UNK
  2. CALCIUM FOLINATE [Suspect]
     Active Substance: LEUCOVORIN CALCIUM
     Indication: COLORECTAL CANCER METASTATIC
     Dosage: 210 MG/M2, BIWEEKLY
     Route: 042
     Dates: start: 20140402
  3. CALCIUM FOLINATE [Suspect]
     Active Substance: LEUCOVORIN CALCIUM
     Dosage: 100 MG/M2, BIWEEKLY
     Route: 042
     Dates: start: 20140415
  4. BEVACIZUMAB [Suspect]
     Active Substance: BEVACIZUMAB
     Indication: COLORECTAL CANCER METASTATIC
     Dosage: 478 MG, BIWEEKLY
     Route: 042
     Dates: start: 20140402
  5. BEVACIZUMAB [Suspect]
     Active Substance: BEVACIZUMAB
     Dosage: 478 UNK, UNK
     Route: 042
     Dates: start: 20140423
  6. OXALIPLATIN. [Suspect]
     Active Substance: OXALIPLATIN
     Dosage: 175 MG/M2, BIWEEKLY
     Route: 042
     Dates: start: 20140402
  7. FLUOROURACIL. [Suspect]
     Active Substance: FLUOROURACIL
     Indication: COLORECTAL CANCER METASTATIC
     Dosage: 478 MG/KG, BIWEEKLY
     Route: 042
     Dates: start: 20140402
  8. IRINOTECAN [Suspect]
     Active Substance: IRINOTECAN
     Dosage: 340 MG/M2, BIWEEKLY
     Route: 042
     Dates: start: 20140402
  9. BEVACIZUMAB [Suspect]
     Active Substance: BEVACIZUMAB
     Dosage: 478 MG, BIWEEKLY
     Route: 042
     Dates: start: 20140415, end: 20140422
  10. NEULASTA [Concomitant]
     Active Substance: PEGFILGRASTIM
     Dosage: UNK
  11. CIPRO                              /00697201/ [Concomitant]
     Active Substance: CIPROFLOXACIN
     Dosage: 500 MG, UNK
     Dates: start: 20140603, end: 20140613
  12. IRINOTECAN [Suspect]
     Active Substance: IRINOTECAN
     Indication: COLORECTAL CANCER METASTATIC
     Route: 042
     Dates: start: 20140415

REACTIONS (6)
  - Atrial fibrillation [Unknown]
  - Dehydration [Recovered/Resolved]
  - Diarrhoea [Recovered/Resolved]
  - Bradycardia [Unknown]
  - Chest pain [Unknown]
  - Neutrophil count decreased [Recovered/Resolved]

NARRATIVE: CASE EVENT DATE: 20140408
